FAERS Safety Report 20077135 (Version 1)
Quarter: 2021Q4

REPORT INFORMATION
  Report Type: Report from Study
  Country: US (occurrence: US)
  Receive Date: 20211116
  Receipt Date: 20211116
  Transmission Date: 20220304
  Serious: No
  Sender: FDA-Public Use
  Company Number: US-TG THERAPEUTICS INC.-TGT002133

PATIENT
  Age: 80 Year
  Sex: Female

DRUGS (1)
  1. UMBRALISIB [Suspect]
     Active Substance: UMBRALISIB
     Indication: Follicular lymphoma
     Dosage: 800 MILLIGRAM, QD
     Route: 048

REACTIONS (5)
  - Diarrhoea [Unknown]
  - Dyspnoea [Unknown]
  - Product dose omission issue [Unknown]
  - Disease progression [Unknown]
  - Drug ineffective [Unknown]

NARRATIVE: CASE EVENT DATE: 20211029
